FAERS Safety Report 10047109 (Version 2)
Quarter: 2014Q1

REPORT INFORMATION
  Report Type: Spontaneous
  Country: US (occurrence: US)
  Receive Date: 20140331
  Receipt Date: 20140331
  Transmission Date: 20141002
  Serious: No
  Sender: FDA-Public Use
  Company Number: US-MYLANLABS-2013S1008303

PATIENT
  Age: 47 Year
  Sex: Male

DRUGS (6)
  1. BUTRANS /00444001/ [Suspect]
     Indication: BACK PAIN
     Route: 062
     Dates: end: 20130412
  2. FENTANYL TRANSDERMAL SYSTEM [Suspect]
     Indication: BACK PAIN
     Dosage: Q72HR
     Route: 062
     Dates: start: 20130412
  3. ADDERALL [Concomitant]
     Indication: ATTENTION DEFICIT/HYPERACTIVITY DISORDER
  4. ALPRAZOLAM [Concomitant]
     Indication: PANIC ATTACK
  5. CYMBALTA [Concomitant]
  6. SEROQUEL [Concomitant]
     Indication: INSOMNIA

REACTIONS (1)
  - Feeling abnormal [Not Recovered/Not Resolved]
